FAERS Safety Report 8254810 (Version 2)
Quarter: 2013Q1

REPORT INFORMATION
  Report Type: Spontaneous
  Country: US (occurrence: None)
  Receive Date: 20111114
  Receipt Date: 20130219
  Transmission Date: 20140127
  Serious: Yes (Hospitalization)
  Sender: FDA-Public Use
  Company Number: CIP11000010

PATIENT
  Age: 63 Year
  Sex: Female

DRUGS (42)
  1. ACTONEL [Suspect]
     Dosage: 35 MG, 1/WEEK, ORAL
     Route: 048
     Dates: start: 20050427, end: 200902
  2. PROTONIX [Concomitant]
  3. LYRICA [Concomitant]
  4. FELODIPINE [Concomitant]
  5. CALCIUM (CALCIUM) [Concomitant]
  6. PAROXETINE (PAROXETINE) [Concomitant]
  7. FUROSEMIDE (FUROSEMIDE) [Concomitant]
  8. GEMFIBROZIL (GEMFIBROZIL) [Concomitant]
  9. VITAMIN C [Concomitant]
  10. KLOR-CON [Concomitant]
  11. LIPITOR [Concomitant]
  12. AMITRIPTYLINE (AMITRIPTYLINE) [Concomitant]
  13. ASPIRIN (ACETYLSALICYLIC ACID) [Concomitant]
  14. SYMBICORT [Concomitant]
  15. ALBUTEROL (SALBUTAMOL) [Concomitant]
  16. SPIRIVA [Concomitant]
  17. CYMBALTA (DULOXETINE HYDROCHLORIDE) [Concomitant]
  18. SEREVENT (SALMETEREOL XINAFOATE) [Concomitant]
  19. DYAZIDE (HYDROCHLOROTHIAZIDE, TRIAMTERENE) [Concomitant]
  20. TESSALON PERLE (BENZONATATE) [Concomitant]
  21. ADVAIR (FLUTICASONE PROPIONATE, SALMETEROL XINAFOATE) [Concomitant]
  22. MUCINEX (GUAIFENESIN) [Concomitant]
  23. XOPENEX (LEVOSALBUTAMOL) [Concomitant]
  24. CELEBREX (CELECOXIB) [Concomitant]
  25. NEURONTIN (GABAPENTIN) [Concomitant]
  26. LIDODERM (LIDOCAINE) [Concomitant]
  27. FLOVENT (FLUTICASONE PROPIONATE) [Concomitant]
  28. LEVAQUIN (LEVOFLOXACIN) [Concomitant]
  29. NICOTROL (NICOTINE) [Concomitant]
  30. ENABLEX (DARIFENACIN) [Concomitant]
  31. CALTREX (CALCIUM, COLECALCIFEROL) [Concomitant]
  32. ZANTAC (RANITIDINE) [Concomitant]
  33. CHANTIX (VARENICLINE) [Concomitant]
  34. NYSTATIN (NYSTATIN) [Concomitant]
  35. METHYLPREDNISOLONE (METHYLPREDNISOLONE) [Concomitant]
  36. WARFARIN (WARFARIN) [Concomitant]
  37. DINACIRC CR (ISRADIPINE) [Concomitant]
  38. AMBIEN (ZOLPIDEM TARTRATE) [Concomitant]
  39. METOPROLOL (METOPROLOL) [Concomitant]
  40. IPRATROPIUM (IPRATROPIUM) [Concomitant]
  41. OMEPRAZOLE (OMEPRAZOLE) [Concomitant]
  42. ESOMEPRAZOLE (ESOMEPRAZOLE) [Concomitant]

REACTIONS (6)
  - FEMUR FRACTURE [None]
  - ARTHRALGIA [None]
  - PAIN IN EXTREMITY [None]
  - BURSITIS [None]
  - ABASIA [None]
  - Stress fracture [None]
